FAERS Safety Report 7916885-8 (Version None)
Quarter: 2011Q4

REPORT INFORMATION
  Report Type: 
  Country: None (occurrence: None)
  Receive Date: 20111114
  Receipt Date: 20111031
  Transmission Date: 20120403
  Serious: Yes (Life-Threatening)
  Sender: FDA-Public Use
  Company Number: 125766

PATIENT
  Age: 57 Year
  Sex: Male

DRUGS (1)
  1. CERUBIDINE [Suspect]
     Indication: ACUTE LEUKAEMIA
     Dosage: IV
     Route: 042
     Dates: start: 20100408

REACTIONS (1)
  - SEPTIC SHOCK [None]
